FAERS Safety Report 15523353 (Version 1)
Quarter: 2018Q4

REPORT INFORMATION
  Report Type: Spontaneous
  Country: FR (occurrence: FR)
  Receive Date: 20181018
  Receipt Date: 20181018
  Transmission Date: 20190205
  Serious: Yes (Life-Threatening, Hospitalization)
  Sender: FDA-Public Use
  Company Number: FR-TEVA-2018-FR-965607

PATIENT
  Age: 57 Year
  Sex: Female
  Weight: 52 kg

DRUGS (10)
  1. QUETIAPINE. [Suspect]
     Active Substance: QUETIAPINE
     Indication: SCHIZOPHRENIA
     Dosage: 600 MILLIGRAM DAILY;
     Route: 048
  2. LORAZEPAM. [Concomitant]
     Active Substance: LORAZEPAM
     Dosage: 10 MILLIGRAM DAILY;
     Route: 048
  3. ALIMEMAZINE [Concomitant]
     Active Substance: TRIMEPRAZINE
     Dosage: 50 GTT DAILY;
     Route: 048
  4. LORMETAZEPAM [Concomitant]
     Active Substance: LORMETAZEPAM
     Dosage: 2 MILLIGRAM DAILY;
     Route: 048
  5. CYAMEMAZINE [Concomitant]
     Active Substance: CYAMEMAZINE
     Dosage: 300 MILLIGRAM DAILY;
     Route: 048
  6. MIDODRINE (CHLORHYDRATE) [Concomitant]
     Dosage: 15 MILLIGRAM DAILY;
     Route: 048
  7. SERTRALINE [Suspect]
     Active Substance: SERTRALINE HYDROCHLORIDE
     Indication: DEPRESSION
     Dosage: 50 MILLIGRAM DAILY;
     Route: 048
  8. TROPATEPINE (CHLORHYDRATE DE) [Concomitant]
     Dosage: 10 MILLIGRAM DAILY;
     Route: 048
  9. MIRTAZAPINE. [Suspect]
     Active Substance: MIRTAZAPINE
     Indication: DEPRESSION
     Dosage: 30 MILLIGRAM DAILY;
     Route: 048
  10. PANTOPRAZOLE [Concomitant]
     Active Substance: PANTOPRAZOLE
     Dosage: 20 MILLIGRAM DAILY;
     Route: 048

REACTIONS (2)
  - Drug ineffective [Not Recovered/Not Resolved]
  - Suicide attempt [Not Recovered/Not Resolved]

NARRATIVE: CASE EVENT DATE: 20180831
